FAERS Safety Report 6305005-1 (Version None)
Quarter: 2009Q3

REPORT INFORMATION
  Report Type: 
  Country: None (occurrence: None)
  Receive Date: 20090811
  Receipt Date: 20090805
  Transmission Date: 20100115
  Serious: Yes (Death, Hospitalization)
  Sender: FDA-Public Use
  Company Number: IN-ELI_LILLY_AND_COMPANY-IN200908001168

PATIENT
  Age: 38 Year
  Sex: Male

DRUGS (1)
  1. XIGRIS [Suspect]
     Indication: MULTI-ORGAN DISORDER
     Dosage: UNK, UNKNOWN
     Route: 042
     Dates: start: 20090803

REACTIONS (1)
  - CARDIAC ARREST [None]
